FAERS Safety Report 4606621-5 (Version None)
Quarter: 2005Q2

REPORT INFORMATION
  Report Type: 
  Country: None (occurrence: None)
  Receive Date: 20050223
  Receipt Date: 20040421
  Transmission Date: 20051028
  Serious: Yes (Hospitalization)
  Sender: FDA-Public Use
  Company Number: WAES 0404USA01908

PATIENT
  Age: 63 Year
  Sex: Female
  Weight: 68.9467 kg

DRUGS (3)
  1. ZOCOR [Suspect]
     Indication: DYSLIPIDAEMIA
     Dosage: 20 MG/PO
     Route: 048
  2. ZOCOR [Suspect]
     Indication: DYSLIPIDAEMIA
     Dosage: 80 MG/DAILY/PO
     Route: 048
     Dates: end: 20040409
  3. LOPID [Concomitant]

REACTIONS (2)
  - CARDIAC FAILURE CONGESTIVE [None]
  - RHABDOMYOLYSIS [None]
